FAERS Safety Report 4592172-3 (Version None)
Quarter: 2005Q1

REPORT INFORMATION
  Report Type: 
  Country: None (occurrence: None)
  Receive Date: 20050226
  Receipt Date: 20050218
  Transmission Date: 20050727
  Serious: Yes (Life-Threatening, Disabling)
  Sender: FDA-Public Use
  Company Number: US-MERCK-0502USA02539

PATIENT
  Age: 74 Year
  Sex: Male

DRUGS (3)
  1. VIOXX [Suspect]
     Indication: ARTHRITIS
     Route: 048
     Dates: start: 20030101, end: 20040930
  2. GLYBURIDE [Concomitant]
     Route: 065
  3. GLUCOPHAGE [Concomitant]
     Route: 065

REACTIONS (3)
  - CARDIAC FIBRILLATION [None]
  - HEART RATE IRREGULAR [None]
  - THROMBOSIS [None]
